FAERS Safety Report 23236902 (Version 1)
Quarter: 2023Q4

REPORT INFORMATION
  Report Type: Spontaneous
  Country: GB (occurrence: GB)
  Receive Date: 20231128
  Receipt Date: 20231128
  Transmission Date: 20240110
  Serious: Yes (Other)
  Sender: FDA-Public Use
  Company Number: None

PATIENT

DRUGS (1)
  1. LAMOTRIGINE [Suspect]
     Active Substance: LAMOTRIGINE
     Indication: Adverse drug reaction
     Dosage: 100 MG, BID
     Route: 065
     Dates: start: 20230530, end: 20230911

REACTIONS (4)
  - Urinary incontinence [Recovering/Resolving]
  - Irritability [Recovered/Resolved]
  - Insomnia [Recovering/Resolving]
  - Anger [Recovered/Resolved]

NARRATIVE: CASE EVENT DATE: 20230601
